FAERS Safety Report 16794354 (Version 1)
Quarter: 2019Q3

REPORT INFORMATION
  Report Type: Spontaneous
  Country: JP (occurrence: JP)
  Receive Date: 20190911
  Receipt Date: 20190911
  Transmission Date: 20191005
  Serious: Yes (Other)
  Sender: FDA-Public Use
  Company Number: JP-DSJP-DSJ-2011-21242

PATIENT
  Age: 60 Year
  Sex: Female
  Weight: 48 kg

DRUGS (8)
  1. LORFENAMIN [Concomitant]
     Active Substance: LOXOPROFEN
     Indication: OSTEOARTHRITIS
     Dosage: 60 MG, AS NEEDED
     Route: 048
  2. ULCERLMIN [Concomitant]
     Active Substance: SUCRALFATE
     Indication: SCLERODERMA
     Dosage: 1 G, QID
     Route: 048
  3. REBAMIPIDE [Concomitant]
     Active Substance: REBAMIPIDE
     Indication: OSTEOARTHRITIS
     Dosage: 100 MG, TID
     Route: 048
  4. PREDNISOLONE. [Concomitant]
     Active Substance: PREDNISOLONE
     Indication: SCLERODERMA
     Dosage: 5 MG, BID
     Route: 048
  5. KOLANTYL                           /00130401/ [Concomitant]
     Indication: SCLERODERMA
     Dosage: 1 G, QID
     Route: 048
  6. TAKEPRON [Concomitant]
     Active Substance: LANSOPRAZOLE
     Indication: SCLERODERMA
     Dosage: 30 MG, QD
     Route: 048
  7. CODEINE PHOSPHATE [Concomitant]
     Active Substance: CODEINE PHOSPHATE
     Indication: SCLERODERMA
     Dosage: 1 G, AS NEEDED
     Route: 048
  8. LIXIANA TABLETS [Suspect]
     Active Substance: EDOXABAN TOSYLATE
     Indication: HIP ARTHROPLASTY
     Dosage: 15 MG, QD
     Route: 048
     Dates: start: 20110915, end: 20110919

REACTIONS (1)
  - Haemorrhage [Recovered/Resolved]

NARRATIVE: CASE EVENT DATE: 20110916
